FAERS Safety Report 15669950 (Version 1)
Quarter: 2018Q4

REPORT INFORMATION
  Report Type: Report from Study
  Country: BW (occurrence: BW)
  Receive Date: 20181129
  Receipt Date: 20181129
  Transmission Date: 20190205
  Serious: Yes (Congenital Anomaly, Other)
  Sender: FDA-Public Use
  Company Number: BW-MYLANLABS-2018M1087723

PATIENT
  Sex: Male
  Weight: 3.22 kg

DRUGS (2)
  1. EMTRICITABINE/TENOFOVIR DISOPROXIL FUMARATE [Suspect]
     Active Substance: EMTRICITABINE\TENOFOVIR DISOPROXIL FUMARATE
     Indication: PRODUCT USED FOR UNKNOWN INDICATION
     Dosage: 1 DOSAGE FORM
     Route: 064
     Dates: start: 20180208
  2. TIVICAY [Suspect]
     Active Substance: DOLUTEGRAVIR SODIUM
     Indication: PRODUCT USED FOR UNKNOWN INDICATION
     Dosage: 1 DOSAGE FORM
     Route: 064
     Dates: start: 20180208

REACTIONS (8)
  - Jaw disorder [Unknown]
  - Talipes [Unknown]
  - Body dysmorphic disorder [Unknown]
  - Head lag abnormal [Unknown]
  - Arachnodactyly [Unknown]
  - External ear disorder [Unknown]
  - Foetal exposure during pregnancy [Recovered/Resolved]
  - Low set ears [Unknown]

NARRATIVE: CASE EVENT DATE: 2018
